FAERS Safety Report 12895253 (Version 1)
Quarter: 2016Q4

REPORT INFORMATION
  Report Type: Spontaneous
  Country: US (occurrence: US)
  Receive Date: 20161028
  Receipt Date: 20161028
  Transmission Date: 20170207
  Serious: Yes (Hospitalization)
  Sender: FDA-Public Use
  Company Number: None

PATIENT
  Age: 55 Year
  Sex: Male
  Weight: 51.3 kg

DRUGS (20)
  1. LAMOTRIGINE. [Concomitant]
     Active Substance: LAMOTRIGINE
  2. TADALAFIL [Concomitant]
     Active Substance: TADALAFIL
  3. LANTUS [Concomitant]
     Active Substance: INSULIN GLARGINE
  4. NYSTATIN. [Concomitant]
     Active Substance: NYSTATIN
  5. GABAPENTIN. [Concomitant]
     Active Substance: GABAPENTIN
  6. ZEPATIER [Suspect]
     Active Substance: ELBASVIR\GRAZOPREVIR
     Indication: HEPATITIS C
     Route: 048
     Dates: start: 20160317, end: 20160609
  7. SUCCINATE [Concomitant]
  8. OXYCODONE [Concomitant]
     Active Substance: OXYCODONE
  9. VELPHORO [Concomitant]
     Active Substance: FERRIC OXYHYDROXIDE
  10. DESONISE [Concomitant]
  11. DIFLUPREDNATE [Concomitant]
     Active Substance: DIFLUPREDNATE
  12. MUPIROCIN. [Concomitant]
     Active Substance: MUPIROCIN
  13. OMEPRAZOLE. [Concomitant]
     Active Substance: OMEPRAZOLE
  14. VITAMIN B COMPLEX-VITAMIN C-FOLIC ACID [Concomitant]
  15. KETOCONAZOLE. [Concomitant]
     Active Substance: KETOCONAZOLE
  16. NALOXONE [Concomitant]
     Active Substance: NALOXONE
  17. POLYETHYLENE GLYCOL [Concomitant]
     Active Substance: POLYETHYLENE GLYCOLS
  18. METOPROLOL. [Concomitant]
     Active Substance: METOPROLOL
  19. NOVOLOG [Concomitant]
     Active Substance: INSULIN ASPART
  20. LIDOCAINE. [Concomitant]
     Active Substance: LIDOCAINE

REACTIONS (2)
  - Wound [None]
  - Muscle abscess [None]

NARRATIVE: CASE EVENT DATE: 20160611
